FAERS Safety Report 6232322-6 (Version None)
Quarter: 2009Q2

REPORT INFORMATION
  Report Type: 
  Country: None (occurrence: None)
  Receive Date: 20090617
  Receipt Date: 20090615
  Transmission Date: 20091009
  Serious: Yes (Life-Threatening)
  Sender: FDA-Public Use
  Company Number: ZA-B.I. PHARMACEUTICALS,INC./RIDGEFIELD-2009-ZA-00060ZA

PATIENT
  Sex: Female
  Weight: 80 kg

DRUGS (2)
  1. MICARDIS [Suspect]
     Indication: HYPERTENSION
     Dosage: 80MG
     Route: 048
     Dates: start: 20090525, end: 20090527
  2. ZITHROMAX [Concomitant]
     Indication: INFLUENZA
     Dosage: 2G
     Route: 048
     Dates: start: 20090525, end: 20090525

REACTIONS (1)
  - HYPERSENSITIVITY [None]
